FAERS Safety Report 8308686-6 (Version None)
Quarter: 2012Q2

REPORT INFORMATION
  Report Type: 
  Country: None (occurrence: None)
  Receive Date: 20120424
  Receipt Date: 20120418
  Transmission Date: 20120825
  Serious: Yes (Other)
  Sender: FDA-Public Use
  Company Number: GB-ABBOTT-12P-167-0927002-00

PATIENT
  Age: 39 Year
  Sex: Female

DRUGS (2)
  1. AZATHIOPRINE [Concomitant]
     Indication: CROHN'S DISEASE
     Route: 048
     Dates: start: 19970101, end: 20120301
  2. HUMIRA [Suspect]
     Indication: CROHN'S DISEASE
     Route: 058
     Dates: start: 20110101, end: 20120301

REACTIONS (2)
  - SKIN LESION [None]
  - BOWEN'S DISEASE [None]
